FAERS Safety Report 5951227-9 (Version None)
Quarter: 2008Q4

REPORT INFORMATION
  Report Type: 
  Country: None (occurrence: None)
  Receive Date: 20081022
  Receipt Date: 20080814
  Transmission Date: 20090506
  Serious: No
  Sender: FDA-Public Use
  Company Number: SPV1-2008-01740

PATIENT
  Age: 31 Year
  Sex: Female
  Weight: 94.8 kg

DRUGS (5)
  1. VYVANSE [Suspect]
     Indication: ATTENTION DEFICIT/HYPERACTIVITY DISORDER
     Dosage: 70 MG, 1X/DAY: QD, ORAL;  100 MG, 1X/DAY: QD, ORAL
     Route: 048
     Dates: start: 20070801, end: 20070901
  2. VYVANSE [Suspect]
     Indication: ATTENTION DEFICIT/HYPERACTIVITY DISORDER
     Dosage: 70 MG, 1X/DAY: QD, ORAL;  100 MG, 1X/DAY: QD, ORAL
     Route: 048
     Dates: start: 20080601
  3. SINGULAIR /01362601/ (MONTELUKAST) [Concomitant]
  4. ALBUTEROL /00139501/ (SALBUTAMOL) [Concomitant]
  5. ALLEGRA /01314201/ (FEXOFENADINE) [Concomitant]

REACTIONS (4)
  - DRUG INEFFECTIVE [None]
  - OVERDOSE [None]
  - TACHYCARDIA [None]
  - WEIGHT INCREASED [None]
